FAERS Safety Report 8352650-8 (Version None)
Quarter: 2012Q2

REPORT INFORMATION
  Report Type: 
  Country: None (occurrence: None)
  Receive Date: 20120511
  Receipt Date: 20120503
  Transmission Date: 20120825
  Serious: Yes (Other)
  Sender: FDA-Public Use
  Company Number: US-BAYER-2012-000670

PATIENT
  Sex: Female

DRUGS (5)
  1. NEXAVAR [Suspect]
     Indication: HEPATIC NEOPLASM MALIGNANT
     Dosage: UNK
     Dates: start: 20111230
  2. NEXAVAR [Suspect]
     Dosage: 200 MG, BID
     Dates: start: 20120101
  3. MORPHINE [Concomitant]
     Indication: PAIN
  4. LEVAQUIN [Concomitant]
     Indication: BACTERIAL INFECTION
     Route: 048
  5. NEXAVAR [Suspect]
     Dosage: 400 MG, BID

REACTIONS (11)
  - PAIN [None]
  - CONSTIPATION [None]
  - APHAGIA [None]
  - NAUSEA [None]
  - ABDOMINAL PAIN UPPER [None]
  - VOMITING [None]
  - PAIN OF SKIN [None]
  - SKIN BURNING SENSATION [None]
  - SKIN EXFOLIATION [None]
  - FATIGUE [None]
  - BACK PAIN [None]
